FAERS Safety Report 8577574-2 (Version None)
Quarter: 2012Q3

REPORT INFORMATION
  Report Type: 
  Country: None (occurrence: None)
  Receive Date: 20120807
  Receipt Date: 20120730
  Transmission Date: 20120928
  Serious: Yes (Hospitalization)
  Sender: FDA-Public Use
  Company Number: BR-TEVA-351650ISR

PATIENT
  Sex: Female
  Weight: 53 kg

DRUGS (2)
  1. COPAXONE [Suspect]
     Indication: SECONDARY PROGRESSIVE MULTIPLE SCLEROSIS
     Dosage: 20 MILLIGRAM DAILY;
     Route: 058
     Dates: start: 20120523, end: 20120726
  2. COPAXONE [Suspect]
     Dosage: 20 MILLIGRAM DAILY;
     Route: 058
     Dates: start: 20120729

REACTIONS (10)
  - PNEUMONIA [None]
  - SPEECH DISORDER [None]
  - ASTHENIA [None]
  - HYPONATRAEMIA [None]
  - OFF LABEL USE [None]
  - GENERALISED OEDEMA [None]
  - URINARY TRACT INFECTION [None]
  - HYPOTENSION [None]
  - RESPIRATORY FAILURE [None]
  - SOMNOLENCE [None]
